FAERS Safety Report 14002412 (Version 2)
Quarter: 2017Q4

REPORT INFORMATION
  Report Type: Spontaneous
  Country: US (occurrence: US)
  Receive Date: 20170922
  Receipt Date: 20171120
  Transmission Date: 20180321
  Serious: Yes (Death, Hospitalization)
  Sender: FDA-Public Use
  Company Number: US-JNJFOC-20170820162

PATIENT
  Age: 79 Year
  Sex: Male

DRUGS (6)
  1. XARELTO [Suspect]
     Active Substance: RIVAROXABAN
     Indication: PULMONARY EMBOLISM
     Route: 048
     Dates: start: 20150813, end: 20150821
  2. XARELTO [Suspect]
     Active Substance: RIVAROXABAN
     Indication: SUBCLAVIAN ARTERY STENOSIS
     Route: 048
     Dates: start: 20150813, end: 20150821
  3. XARELTO [Suspect]
     Active Substance: RIVAROXABAN
     Indication: DEEP VEIN THROMBOSIS
     Route: 048
     Dates: start: 20150813, end: 20150821
  4. PLAVIX [Suspect]
     Active Substance: CLOPIDOGREL BISULFATE
     Indication: SUBCLAVIAN ARTERY STENOSIS
     Route: 065
     Dates: end: 201508
  5. PLAVIX [Suspect]
     Active Substance: CLOPIDOGREL BISULFATE
     Indication: CATHETER PLACEMENT
     Route: 065
     Dates: end: 201508
  6. XARELTO [Suspect]
     Active Substance: RIVAROXABAN
     Indication: CATHETER PLACEMENT
     Route: 048
     Dates: start: 20150813, end: 20150821

REACTIONS (2)
  - Upper gastrointestinal haemorrhage [Unknown]
  - Blood urea increased [Unknown]

NARRATIVE: CASE EVENT DATE: 20150820
